FAERS Safety Report 7910998-2 (Version None)
Quarter: 2011Q4

REPORT INFORMATION
  Report Type: 
  Country: None (occurrence: None)
  Receive Date: 20111114
  Receipt Date: 20111107
  Transmission Date: 20120403
  Serious: No
  Sender: FDA-Public Use
  Company Number: US-BIOGENIDEC-2011BI042627

PATIENT
  Age: 62 Year
  Sex: Female

DRUGS (2)
  1. TYSABRI [Suspect]
     Indication: MULTIPLE SCLEROSIS
     Route: 042
     Dates: start: 20090828, end: 20110422
  2. SOLU-MEDROL [Concomitant]

REACTIONS (4)
  - NAUSEA [None]
  - DYSGEUSIA [None]
  - DIZZINESS POSTURAL [None]
  - HYPERTENSION [None]
